FAERS Safety Report 7122426-8 (Version None)
Quarter: 2010Q4

REPORT INFORMATION
  Report Type: 
  Country: None (occurrence: None)
  Receive Date: 20101122
  Receipt Date: 20101122
  Transmission Date: 20110411
  Serious: Yes (Hospitalization)
  Sender: FDA-Public Use
  Company Number: None

PATIENT
  Age: 24 Year
  Sex: Female
  Weight: 50 kg

DRUGS (2)
  1. YASMIN [Suspect]
     Indication: MENSTRUAL CYCLE MANAGEMENT
     Dosage: YASMIN ONE PILL PER DAY ORALLY, 1-2 YEARS
     Route: 048
  2. YASMIN [Suspect]
     Indication: ORAL CONTRACEPTION
     Dosage: YASMIN ONE PILL PER DAY ORALLY, 1-2 YEARS
     Route: 048

REACTIONS (3)
  - ABDOMINAL DISTENSION [None]
  - CHEST PAIN [None]
  - CHOLELITHIASIS [None]
